FAERS Safety Report 15700512 (Version 3)
Quarter: 2020Q1

REPORT INFORMATION
  Report Type: Report from Study
  Country: US (occurrence: US)
  Receive Date: 20181207
  Receipt Date: 20200323
  Transmission Date: 20200409
  Serious: Yes (Other)
  Sender: FDA-Public Use
  Company Number: US-UCBSA-2018053740

PATIENT
  Age: 31 Year
  Sex: Female
  Weight: 54.43 kg

DRUGS (21)
  1. CERTOLIZUMAB PEGOL RA [Suspect]
     Active Substance: CERTOLIZUMAB PEGOL
     Indication: CROHN^S DISEASE
     Dosage: 400 MG, MONTHLY (QM)
     Route: 058
     Dates: start: 20170727, end: 20180421
  2. CAFFEINE. [Concomitant]
     Active Substance: CAFFEINE
     Indication: PRODUCT USED FOR UNKNOWN INDICATION
  3. FISH OIL [Concomitant]
     Active Substance: FISH OIL
     Indication: PRODUCT USED FOR UNKNOWN INDICATION
  4. METAMUCIL [Concomitant]
     Active Substance: PLANTAGO SEED
     Indication: PRODUCT USED FOR UNKNOWN INDICATION
  5. BENADRYL [Concomitant]
     Active Substance: DIPHENHYDRAMINE HYDROCHLORIDE
     Indication: HYPERSENSITIVITY
  6. DTAP [Concomitant]
     Active Substance: DIPHTHERIA AND TETANUS TOXOIDS AND ACELLULAR PERTUSSIS VACCINE ADSORBED
     Indication: PRODUCT USED FOR UNKNOWN INDICATION
  7. HUMIRA [Concomitant]
     Active Substance: ADALIMUMAB
     Indication: CROHN^S DISEASE
  8. PROTEIN [Concomitant]
     Active Substance: PROTEIN
     Indication: CROHN^S DISEASE
  9. TYLENOL [Concomitant]
     Active Substance: ACETAMINOPHEN
     Indication: HERPES ZOSTER
  10. GABAPENTIN. [Concomitant]
     Active Substance: GABAPENTIN
     Indication: HERPES ZOSTER
  11. PEPCID [Concomitant]
     Active Substance: FAMOTIDINE
     Indication: DYSPEPSIA
  12. PROBIOTICS NOS [Concomitant]
     Active Substance: PROBIOTICS NOS
     Indication: PRODUCT USED FOR UNKNOWN INDICATION
  13. SALINE [Concomitant]
     Active Substance: SODIUM CHLORIDE
     Indication: PRODUCT USED FOR UNKNOWN INDICATION
  14. DHA [Concomitant]
     Active Substance: DIETARY SUPPLEMENT
     Indication: PRODUCT USED FOR UNKNOWN INDICATION
  15. FLU [Concomitant]
     Active Substance: INFLUENZA VIRUS VACCINE
     Indication: PRODUCT USED FOR UNKNOWN INDICATION
  16. PRENATAL VITAMINS [Concomitant]
     Active Substance: VITAMINS
     Indication: PRODUCT USED FOR UNKNOWN INDICATION
  17. AMOXICILLIN. [Concomitant]
     Active Substance: AMOXICILLIN
     Indication: ORAL INFECTION
     Dosage: UNK
     Dates: start: 20180125, end: 20180201
  18. TAMIFLU [Concomitant]
     Active Substance: OSELTAMIVIR PHOSPHATE
     Indication: INFLUENZA
  19. TYLENOL [Concomitant]
     Active Substance: ACETAMINOPHEN
     Indication: HEADACHE
  20. VALACICLOVIR [Concomitant]
     Active Substance: VALACYCLOVIR HYDROCHLORIDE
     Indication: HERPES ZOSTER
  21. VITAMIN B COMPLEX [Concomitant]
     Active Substance: CYANOCOBALAMIN\DEXPANTHENOL\NIACINAMIDE\PYRIDOXINE HYDROCHLORIDE\RIBOFLAVIN 5^-PHOSPHATE SODIUM\THIAMINE HYDROCHLORIDE\VITAMIN B COMPLEX
     Indication: PRODUCT USED FOR UNKNOWN INDICATION

REACTIONS (9)
  - Headache [Recovered/Resolved]
  - Oral infection [Recovered/Resolved]
  - Dyspepsia [Recovered/Resolved]
  - Sinusitis [Recovered/Resolved]
  - Influenza [Recovered/Resolved]
  - Fall [Recovered/Resolved]
  - Hypersensitivity [Recovered/Resolved]
  - Maternal exposure before pregnancy [Unknown]
  - Herpes zoster [Recovered/Resolved]

NARRATIVE: CASE EVENT DATE: 20170805
